FAERS Safety Report 5495568-0 (Version None)
Quarter: 2007Q4

REPORT INFORMATION
  Report Type: 
  Country: None (occurrence: None)
  Receive Date: 20071015
  Receipt Date: 20061108
  Transmission Date: 20080405
  Serious: Yes (Hospitalization, Other)
  Sender: FDA-Public Use
  Company Number: S06-USA-04715-01

PATIENT
  Age: 51 Year
  Sex: Male

DRUGS (11)
  1. LEXAPRO [Suspect]
     Indication: BIPOLAR II DISORDER
     Dosage: 40 MG QD PO
     Route: 048
     Dates: end: 20061108
  2. LEXAPRO [Suspect]
     Indication: BIPOLAR II DISORDER
     Dosage: 10 MG QD PO
     Route: 048
     Dates: start: 20040101
  3. LEXAPRO [Suspect]
     Indication: BIPOLAR II DISORDER
  4. LITHIUM [Suspect]
     Indication: BIPOLAR II DISORDER
     Dosage: 300 MG QD PO
     Route: 048
     Dates: start: 20061102, end: 20061108
  5. LITHIUM [Suspect]
     Indication: BIPOLAR II DISORDER
     Dosage: 1200  MG QD PO
     Route: 048
     Dates: end: 20060930
  6. LITHIUM [Suspect]
     Indication: BIPOLAR II DISORDER
     Dates: start: 20061001, end: 20061101
  7. WELLBUTRIN XL [Concomitant]
  8. GEODON [Concomitant]
  9. ATENOLOL [Concomitant]
  10. LIPITOR [Concomitant]
  11. MAXALT [Concomitant]

REACTIONS (1)
  - SEROTONIN SYNDROME [None]
